FAERS Safety Report 9078870 (Version 1)
Quarter: 2013Q1

REPORT INFORMATION
  Report Type: Report from Study
  Country: US (occurrence: US)
  Receive Date: 20130130
  Receipt Date: 20130130
  Transmission Date: 20140127
  Serious: Yes (Other)
  Sender: FDA-Public Use
  Company Number: US-US-EMD SERONO, INC.-7189452

PATIENT
  Age: 9 Year
  Sex: Female
  Weight: 28 kg

DRUGS (1)
  1. SAIZEN [(SOMATROPIN (RDNA ORIGIN) FOR INJECTION)] [Suspect]
     Indication: GROWTH HORMONE DEFICIENCY
     Route: 058
     Dates: start: 20080513

REACTIONS (4)
  - Osteoma [Unknown]
  - Blood thyroid stimulating hormone abnormal [Unknown]
  - Bone disorder [Unknown]
  - Injection site pain [Unknown]
